FAERS Safety Report 7660003-0 (Version None)
Quarter: 2011Q3

REPORT INFORMATION
  Report Type: 
  Country: None (occurrence: None)
  Receive Date: 20110805
  Receipt Date: 20110803
  Transmission Date: 20111222
  Serious: Yes (Other)
  Sender: FDA-Public Use
  Company Number: US-AMGEN-USASP2011036570

PATIENT
  Age: 26 Year
  Sex: Female

DRUGS (3)
  1. NPLATE [Suspect]
     Indication: IDIOPATHIC THROMBOCYTOPENIC PURPURA
     Dates: start: 20101111, end: 20101209
  2. IMMUNOGLOBULINS [Concomitant]
  3. SOLU-MEDROL [Concomitant]

REACTIONS (3)
  - DRUG INEFFECTIVE [None]
  - BACTERAEMIA [None]
  - BIOPSY BONE MARROW ABNORMAL [None]
